FAERS Safety Report 26122151 (Version 1)
Quarter: 2025Q4

REPORT INFORMATION
  Report Type: Spontaneous
  Country: EU (occurrence: EU)
  Receive Date: 20251204
  Receipt Date: 20251204
  Transmission Date: 20260118
  Serious: Yes (Other)
  Sender: PFIZER
  Company Number: EU-IPSEN Group, Research and Development-2025-28425

PATIENT
  Age: 54 Year
  Sex: Male

DRUGS (7)
  1. SUNITINIB MALATE [Suspect]
     Active Substance: SUNITINIB MALATE
     Indication: Gastroenteropancreatic neuroendocrine tumour disease
     Dosage: UNK
     Dates: start: 202309
  2. LANREOTIDE ACETATE [Suspect]
     Active Substance: LANREOTIDE ACETATE
     Indication: Gastroenteropancreatic neuroendocrine tumour disease
     Dosage: 120 MG
     Route: 058
     Dates: start: 201902, end: 202111
  3. LANREOTIDE ACETATE [Suspect]
     Active Substance: LANREOTIDE ACETATE
     Dosage: 120 MG
     Route: 058
     Dates: start: 202206
  4. CABOZANTINIB S-MALATE [Suspect]
     Active Substance: CABOZANTINIB S-MALATE
     Indication: Gastroenteropancreatic neuroendocrine tumour disease
     Dosage: UNK
  5. EVEROLIMUS [Suspect]
     Active Substance: EVEROLIMUS
     Indication: Gastroenteropancreatic neuroendocrine tumour disease
     Dosage: UNK
     Dates: start: 2021
  6. CAPECITABINE [Suspect]
     Active Substance: CAPECITABINE
     Indication: Gastroenteropancreatic neuroendocrine tumour disease
     Dosage: UNK
  7. TEMOZOLOMIDE [Suspect]
     Active Substance: TEMOZOLOMIDE

REACTIONS (3)
  - Ascites [Recovered/Resolved]
  - Condition aggravated [Recovered/Resolved]
  - Cardiac failure [Recovered/Resolved]

NARRATIVE: CASE EVENT DATE: 20230901
